FAERS Safety Report 22298234 (Version 1)
Quarter: 2023Q2

REPORT INFORMATION
  Report Type: Spontaneous
  Country: ES (occurrence: ES)
  Receive Date: 20230509
  Receipt Date: 20230509
  Transmission Date: 20230722
  Serious: Yes (Hospitalization)
  Sender: FDA-Public Use
  Company Number: ES-Accord-357003

PATIENT
  Age: 63 Year
  Sex: Male
  Weight: 57.2 kg

DRUGS (39)
  1. GEMCITABINE [Suspect]
     Active Substance: GEMCITABINE
     Indication: Ductal adenocarcinoma of pancreas
     Dosage: DOSE GIVEN ON DAY 1, 8 AND 15
     Route: 042
     Dates: start: 20230109, end: 20230109
  2. PACLITAXEL [Suspect]
     Active Substance: PACLITAXEL
     Indication: Ductal adenocarcinoma of pancreas
     Dosage: DOSE GIVEN ON DAY 1, 8 AND 15
     Route: 042
     Dates: start: 20230109, end: 20230109
  3. ALBUMIN HUMAN [Concomitant]
     Active Substance: ALBUMIN HUMAN
     Indication: Generalised oedema
     Route: 065
  4. BROMAZEPAM [Concomitant]
     Active Substance: BROMAZEPAM
     Indication: Insomnia
     Route: 048
     Dates: start: 202205
  5. CIPROFLOXACIN [Concomitant]
     Active Substance: CIPROFLOXACIN
     Indication: Pyrexia
     Route: 065
  6. DOMPERIDONE [Concomitant]
     Active Substance: DOMPERIDONE
     Indication: Gastric disorder
     Dosage: AS REQUIRED
     Route: 048
     Dates: start: 202212
  7. ARGININE ASPARTATE [Concomitant]
     Active Substance: ARGININE ASPARTATE
     Indication: Nutritional supplementation
     Route: 048
     Dates: start: 2013
  8. FILGRASTIM [Concomitant]
     Active Substance: FILGRASTIM
     Indication: Haematotoxicity
  9. FUROSEMIDE [Concomitant]
     Active Substance: FUROSEMIDE
     Indication: Generalised oedema
  10. FUROSEMIDE [Concomitant]
     Active Substance: FUROSEMIDE
     Indication: Oedema peripheral
     Route: 048
     Dates: start: 20230130
  11. BEMIPARIN SODIUM [Concomitant]
     Active Substance: BEMIPARIN SODIUM
     Indication: Thrombosis prophylaxis
     Route: 058
     Dates: start: 20230130
  12. IRON [Concomitant]
     Active Substance: IRON
     Indication: Anaemia
     Dosage: 1 DOSAGE FORMS
     Dates: start: 20230227
  13. LEVOSULPIRIDE [Concomitant]
     Active Substance: LEVOSULPIRIDE
     Indication: Abdominal distension
     Dosage: 3 IN 1 D
     Route: 048
     Dates: start: 202212
  14. LOPERAMIDE [Concomitant]
     Active Substance: LOPERAMIDE
     Indication: Diarrhoea
     Dosage: AS REQUIRED
     Route: 048
     Dates: start: 202205
  15. MEROPENEM [Concomitant]
     Active Substance: MEROPENEM
     Indication: Pyrexia
     Route: 065
     Dates: start: 20230406
  16. OMEPRAZOLE [Concomitant]
     Active Substance: OMEPRAZOLE
     Indication: Prophylaxis
     Route: 048
     Dates: start: 202205
  17. OTILONIUM BROMIDE [Concomitant]
     Active Substance: OTILONIUM BROMIDE
     Indication: Abdominal distension
     Dosage: 3 IN 1 D
     Route: 048
     Dates: start: 202212
  18. PANCREATIN [Concomitant]
     Active Substance: PANCRELIPASE
     Indication: Dyspepsia
     Dosage: 3 IN 1 D
     Route: 048
     Dates: start: 20230130
  19. ACETAMINOPHEN [Concomitant]
     Active Substance: ACETAMINOPHEN
     Indication: Abdominal pain
     Dosage: AS REQUIRED
     Route: 048
     Dates: start: 202205
  20. PLATELETS [Concomitant]
     Active Substance: HUMAN PLATELET, ALLOGENIC
     Indication: Haematotoxicity
     Route: 042
  21. HUMAN RED BLOOD CELL [Concomitant]
     Active Substance: HUMAN RED BLOOD CELL
     Indication: Anaemia
     Dosage: 2 DOSAGE FORM ONCE
     Route: 042
     Dates: start: 20230307, end: 20230307
  22. SPIRONOLACTONE [Concomitant]
     Active Substance: SPIRONOLACTONE
     Indication: Generalised oedema
     Route: 065
  23. SPIRONOLACTONE [Concomitant]
     Active Substance: SPIRONOLACTONE
     Indication: Oedema peripheral
     Route: 048
     Dates: start: 20230130
  24. GEMCITABINE [Suspect]
     Active Substance: GEMCITABINE
     Indication: Ductal adenocarcinoma of pancreas
     Dosage: DOSE GIVEN ON DAY 1, 8 AND 15
     Route: 042
     Dates: start: 20230116, end: 20230116
  25. GEMCITABINE [Suspect]
     Active Substance: GEMCITABINE
     Indication: Ductal adenocarcinoma of pancreas
     Dosage: DOSE GIVEN ON DAY 1, 8 AND 15
     Route: 042
     Dates: start: 20230206, end: 20230206
  26. GEMCITABINE [Suspect]
     Active Substance: GEMCITABINE
     Indication: Ductal adenocarcinoma of pancreas
     Dosage: DOSE GIVEN ON DAY 1, 8 AND 15
     Route: 042
     Dates: start: 20230220, end: 20230220
  27. GEMCITABINE [Suspect]
     Active Substance: GEMCITABINE
     Indication: Ductal adenocarcinoma of pancreas
     Dosage: DOSE GIVEN ON DAY 1, 8 AND 15
     Route: 042
     Dates: start: 20230227, end: 20230227
  28. GEMCITABINE [Suspect]
     Active Substance: GEMCITABINE
     Indication: Ductal adenocarcinoma of pancreas
     Dosage: DOSE GIVEN ON DAY 1, 8 AND 15
     Route: 042
     Dates: start: 20230306, end: 20230306
  29. GEMCITABINE [Suspect]
     Active Substance: GEMCITABINE
     Indication: Ductal adenocarcinoma of pancreas
     Dosage: DOSE GIVEN ON DAY 1, 8 AND 15
     Route: 042
     Dates: start: 20230321, end: 20230321
  30. GEMCITABINE [Suspect]
     Active Substance: GEMCITABINE
     Indication: Ductal adenocarcinoma of pancreas
     Dosage: DOSE GIVEN ON DAY 1, 8 AND 15
     Route: 042
     Dates: start: 20230327, end: 20230327
  31. GEMCITABINE [Suspect]
     Active Substance: GEMCITABINE
     Indication: Ductal adenocarcinoma of pancreas
     Dosage: DOSE GIVEN ON DAY 1, 8 AND 15
     Route: 042
     Dates: start: 20230403, end: 20230403
  32. PACLITAXEL [Suspect]
     Active Substance: PACLITAXEL
     Indication: Ductal adenocarcinoma of pancreas
     Dosage: DOSE GIVEN ON DAY 1, 8 AND 15
     Route: 042
     Dates: start: 20230116, end: 20230116
  33. PACLITAXEL [Suspect]
     Active Substance: PACLITAXEL
     Indication: Ductal adenocarcinoma of pancreas
     Dosage: DOSE GIVEN ON DAY 1, 8 AND 15
     Route: 042
     Dates: start: 20230206, end: 20230206
  34. PACLITAXEL [Suspect]
     Active Substance: PACLITAXEL
     Indication: Ductal adenocarcinoma of pancreas
     Dosage: DOSE GIVEN ON DAY 1, 8 AND 15
     Route: 042
     Dates: start: 20230220, end: 20230220
  35. PACLITAXEL [Suspect]
     Active Substance: PACLITAXEL
     Indication: Ductal adenocarcinoma of pancreas
     Dosage: DOSE GIVEN ON DAY 1, 8 AND 15
     Route: 042
     Dates: start: 20230227, end: 20230227
  36. PACLITAXEL [Suspect]
     Active Substance: PACLITAXEL
     Indication: Ductal adenocarcinoma of pancreas
     Dosage: DOSE GIVEN ON DAY 1, 8 AND 15
     Route: 042
     Dates: start: 20230306, end: 20230306
  37. PACLITAXEL [Suspect]
     Active Substance: PACLITAXEL
     Indication: Ductal adenocarcinoma of pancreas
     Dosage: DOSE GIVEN ON DAY 1, 8 AND 15
     Route: 042
     Dates: start: 20230321, end: 20230321
  38. PACLITAXEL [Suspect]
     Active Substance: PACLITAXEL
     Indication: Ductal adenocarcinoma of pancreas
     Dosage: DOSE GIVEN ON DAY 1, 8 AND 15
     Route: 042
     Dates: start: 20230327, end: 20230327
  39. PACLITAXEL [Suspect]
     Active Substance: PACLITAXEL
     Indication: Ductal adenocarcinoma of pancreas
     Dosage: DOSE GIVEN ON DAY 1, 8 AND 15
     Route: 042
     Dates: start: 20230403, end: 20230403

REACTIONS (3)
  - Pyrexia [Recovered/Resolved]
  - Generalised oedema [Recovered/Resolved]
  - Haematotoxicity [Recovered/Resolved]

NARRATIVE: CASE EVENT DATE: 20230406
